FAERS Safety Report 9682867 (Version 2)
Quarter: 2013Q4

REPORT INFORMATION
  Report Type: Spontaneous
  Country: FR (occurrence: FR)
  Receive Date: 20131112
  Receipt Date: 20131112
  Transmission Date: 20140711
  Serious: Yes (Hospitalization)
  Sender: FDA-Public Use
  Company Number: FR-SA-200912883FR

PATIENT
  Age: 82 Year
  Sex: Female

DRUGS (5)
  1. LOVENOX [Suspect]
     Indication: PRODUCT USED FOR UNKNOWN INDICATION
     Dosage: DOSE UNIT: 4000 IU
     Route: 058
  2. BACTRIM [Suspect]
     Indication: LUNG DISORDER
     Dosage: DOSE UNIT: 400 MG
     Route: 048
     Dates: start: 20090626, end: 20090706
  3. FLECAINE [Suspect]
     Indication: PRODUCT USED FOR UNKNOWN INDICATION
     Dosage: DOSE UNIT: 50 MG
     Route: 048
     Dates: start: 20090627, end: 20090706
  4. STABLON [Suspect]
     Indication: PRODUCT USED FOR UNKNOWN INDICATION
     Dosage: DOSE UNIT: 12.5 MG
     Route: 048
     Dates: start: 20090626, end: 20090706
  5. NO MENTION OF CONCOMITANT DRUG [Concomitant]

REACTIONS (3)
  - Stevens-Johnson syndrome [Recovering/Resolving]
  - Blister [Recovering/Resolving]
  - Skin exfoliation [Recovering/Resolving]
